FAERS Safety Report 24724667 (Version 1)
Quarter: 2024Q4

REPORT INFORMATION
  Report Type: Spontaneous
  Country: ES (occurrence: ES)
  Receive Date: 20241212
  Receipt Date: 20241212
  Transmission Date: 20250115
  Serious: Yes (Other)
  Sender: GALDERMA
  Company Number: ES-GALDERMA-ES2024016858

PATIENT

DRUGS (2)
  1. CLOBETASOL PROPIONATE [Suspect]
     Active Substance: CLOBETASOL PROPIONATE
     Indication: Acarodermatitis
     Dosage: 1 DOSAGE FORM, TID, APPLIED ON ENTIRE SKIN
     Route: 061
  2. HYDROCORTISONE [Concomitant]
     Active Substance: HYDROCORTISONE
     Indication: Product used for unknown indication
     Dosage: 0.2 MILLIGRAM, EVERY 5 DAYS
     Route: 048

REACTIONS (9)
  - Cushing^s syndrome [Recovering/Resolving]
  - Weight increased [Recovering/Resolving]
  - Hair growth abnormal [Recovering/Resolving]
  - Central obesity [Recovering/Resolving]
  - Cushingoid [Recovering/Resolving]
  - Hirsutism [Recovering/Resolving]
  - Product use in unapproved indication [Recovered/Resolved]
  - Inappropriate schedule of product administration [Recovered/Resolved]
  - Overdose [Recovered/Resolved]
